FAERS Safety Report 10240763 (Version 1)
Quarter: 2014Q2

REPORT INFORMATION
  Report Type: Spontaneous
  Country: US (occurrence: US)
  Receive Date: 20140617
  Receipt Date: 20140617
  Transmission Date: 20141212
  Serious: No
  Sender: FDA-Public Use
  Company Number: US-PFIZER INC-2014164968

PATIENT
  Sex: Female

DRUGS (2)
  1. LYRICA [Suspect]
     Indication: PAIN
     Dosage: 450 MG, DAILY
     Route: 048
  2. LYRICA [Suspect]
     Indication: NERVE INJURY

REACTIONS (2)
  - Joint swelling [Unknown]
  - Burning sensation [Unknown]
